FAERS Safety Report 8594587-5 (Version None)
Quarter: 2012Q3

REPORT INFORMATION
  Report Type: 
  Country: None (occurrence: None)
  Receive Date: 20120815
  Receipt Date: 20120803
  Transmission Date: 20120928
  Serious: Yes (Death, Hospitalization)
  Sender: FDA-Public Use
  Company Number: US-CELGENEUS-163-50794-12071000

PATIENT
  Sex: Male
  Weight: 91.7 kg

DRUGS (33)
  1. PROCRIT [Concomitant]
     Dosage: 8571.4286
     Route: 065
     Dates: start: 20120217
  2. FLUTICASONE PROPIONATE [Concomitant]
     Dosage: .1 MILLIGRAM
     Route: 045
  3. FOLIC ACID [Concomitant]
     Dosage: 1 MILLIGRAM
     Route: 048
  4. HYDROCORTISONE-PRAMOXINE [Concomitant]
     Route: 061
  5. METOPROLOL TARTRATE [Concomitant]
     Dosage: 50 MILLIGRAM
     Route: 048
  6. ROSUVASTATIN [Concomitant]
     Dosage: 10 MILLIGRAM
     Route: 048
  7. RITUXAN [Suspect]
     Dosage: 150 MILLIGRAM
     Route: 041
     Dates: start: 20120514
  8. MEROPENEM [Concomitant]
     Dosage: 1 GRAM
     Route: 065
  9. VANCOMYCIN [Concomitant]
     Dosage: 1 GRAM
     Route: 065
  10. DEXTROSE [Concomitant]
     Dosage: 1000 MILLILITER
     Route: 041
  11. VIDAZA [Suspect]
     Dosage: 150 MILLIGRAM
     Route: 041
     Dates: start: 20120514
  12. ACETAMINOPHEN [Concomitant]
     Dosage: 650 MILLIGRAM
     Route: 048
  13. CALCIUM + VITAMIN D [Concomitant]
     Dosage: 1 TABLET
     Route: 048
  14. CIPROFLOXACIN-DEXAMETHASONE OTIC [Concomitant]
     Dosage: 8 DROPS
     Route: 048
  15. DIPHENHYDRAMINE HYDROCHLORIDE [Concomitant]
     Dosage: 25 MILLIGRAM
     Route: 048
  16. FILGRASTIM [Concomitant]
     Dosage: 480 MICROGRAM
     Route: 065
  17. MULTI-VITAMINS [Concomitant]
     Dosage: 1 TABLET
     Route: 065
  18. PHENYLEPHRINE HYDROCHLORIDE [Concomitant]
     Dosage: 1
     Route: 061
  19. RITUXAN [Suspect]
     Route: 041
     Dates: start: 20120622
  20. ACETAMINOPHEN [Concomitant]
     Dosage: 500 MILLIGRAM
     Route: 048
  21. NAPROXEN [Concomitant]
     Dosage: 220 MILLIGRAM
     Route: 048
  22. WHOLE BLOOD [Concomitant]
     Route: 041
  23. VIDAZA [Suspect]
     Dosage: 150 MILLIGRAM
     Route: 041
     Dates: start: 20120719, end: 20120720
  24. RITUXAN [Suspect]
     Route: 041
     Dates: start: 20120719, end: 20120720
  25. PREDNISONE TAB [Concomitant]
     Dosage: 90 MILLIGRAM
     Route: 048
  26. RITUXAN [Suspect]
     Dosage: 17.8571 MILLIGRAM
     Route: 041
     Dates: start: 20120804
  27. VITAMIN B-12 [Concomitant]
     Dosage: 1000 MICROGRAM
     Route: 048
  28. ACETAMINOPHEN [Concomitant]
     Dosage: 500 MILLIGRAM
     Route: 048
  29. BENAZEPRIL HYDROCHLORIDE [Concomitant]
     Dosage: 40 MILLIGRAM
     Route: 048
  30. AUGMENTIN '500' [Concomitant]
     Route: 048
  31. AMLODIPINE [Concomitant]
     Dosage: 5 MILLIGRAM
     Route: 048
  32. OMEPRAZOLE [Concomitant]
     Dosage: 40 MILLIGRAM
     Route: 048
  33. SODIUM CHLORIDE [Concomitant]
     Dosage: 500 MILLILITER
     Route: 041

REACTIONS (8)
  - ANAEMIA [None]
  - PNEUMONIA [None]
  - THROMBOCYTOPENIA [None]
  - RESPIRATORY FAILURE [None]
  - CARDIAC ARREST [None]
  - MUSCLE ABSCESS [None]
  - PANCYTOPENIA [None]
  - FEBRILE NEUTROPENIA [None]
